FAERS Safety Report 22037267 (Version 1)
Quarter: 2023Q1

REPORT INFORMATION
  Report Type: Report from Study
  Country: US (occurrence: US)
  Receive Date: 20230226
  Receipt Date: 20230226
  Transmission Date: 20230417
  Serious: Yes (Other)
  Sender: FDA-Public Use
  Company Number: US-ABBVIE-4317558

PATIENT
  Sex: Female

DRUGS (1)
  1. VENCLEXTA [Suspect]
     Active Substance: VENETOCLAX
     Indication: Acute myeloid leukaemia
     Dosage: FORM STRENGTH: 100 MG?TAKE 1 TABLET (100MG) BY MOUTH DAILY WITH FOOD AND WATER AND TITRATE UP TO ...
     Route: 048

REACTIONS (4)
  - Transfusion [Recovering/Resolving]
  - Haemoglobin decreased [Recovering/Resolving]
  - Blood iron increased [Recovering/Resolving]
  - Full blood count decreased [Recovering/Resolving]
